FAERS Safety Report 8407326-5 (Version None)
Quarter: 2012Q2

REPORT INFORMATION
  Report Type: 
  Country: None (occurrence: None)
  Receive Date: 20120604
  Receipt Date: 20120530
  Transmission Date: 20120825
  Serious: Yes (Other)
  Sender: FDA-Public Use
  Company Number: JP-PFIZER INC-2012130591

PATIENT
  Age: 79 Year
  Sex: Female

DRUGS (29)
  1. NOVOLIN R [Concomitant]
  2. EPLERENONE [Suspect]
     Indication: HYPERTENSION
     Dosage: 50 MG, DAILY
     Route: 048
     Dates: start: 20091221, end: 20120530
  3. MICARDIS [Concomitant]
     Dosage: 40 MG, 2X/DAY
  4. AMOXICILLIN [Concomitant]
     Dosage: 750 MG, 2X/DAY
     Dates: start: 20120525
  5. NEO-MEDROL [Concomitant]
     Dosage: 3 G, 2X/DAY
  6. NORVASC [Concomitant]
     Dosage: 10 MG, 2X/DAY
  7. CARVEDILOL [Concomitant]
     Dosage: 5 MG, 2X/DAY
  8. PURSENNID [Concomitant]
     Dosage: 24 MG, DAILY
  9. LAC B [Concomitant]
     Dosage: 2 G DAILY
  10. KETOPROFEN [Concomitant]
  11. ISOSORBIDE MONONITRATE [Concomitant]
     Dosage: 20 MG, 2X/DAY
  12. ASPIRIN [Concomitant]
     Dosage: 100 MG, 1X/DAY
  13. LASIX [Concomitant]
     Dosage: 40 MG, 1X/DAY
  14. ALLOPURINOL [Concomitant]
     Dosage: 100 MG, DAILY
  15. NOVOLIN R [Concomitant]
  16. BASEN [Concomitant]
     Dosage: 0.2 MG, 3X/DAY
  17. CLARITHROMYCIN [Suspect]
     Indication: HELICOBACTER INFECTION
     Dosage: 400 MG, 2X/DAY
     Route: 048
     Dates: start: 20120525
  18. LOPEMIN [Concomitant]
     Dosage: 1 MG, 2X/DAY
  19. ALBUMIN TANNATE [Concomitant]
     Dosage: 1 G, 2X/DAY
  20. CRESTOR [Concomitant]
     Dosage: 5 MG, 1X/DAY
  21. WARFARIN [Concomitant]
     Dosage: 3 MG, 1X/DAY
  22. ACETAMINOPHEN [Concomitant]
     Dosage: 500 MG, 3X/DAY
  23. PLETAL [Concomitant]
     Dosage: 50 MG, 2X/DAY
  24. RASILEZ [Concomitant]
     Dosage: 150 MG, 2X/DAY
  25. RABEPRAZOLE SODIUM [Concomitant]
     Dosage: 10 MG, DAILY
  26. HALCION [Concomitant]
     Dosage: 0.25 MG, 2X/DAY
  27. EPADEL [Concomitant]
     Dosage: 900 MG, 2X/DAY
  28. NEXIUM [Concomitant]
     Dosage: 20 MG, 2X/DAY
     Dates: start: 20120525
  29. HICEE [Concomitant]
     Dosage: 1 G, 3X/DAY

REACTIONS (1)
  - RENAL FAILURE ACUTE [None]
